FAERS Safety Report 7383299-1 (Version None)
Quarter: 2011Q1

REPORT INFORMATION
  Report Type: 
  Country: None (occurrence: None)
  Receive Date: 20110330
  Receipt Date: 20110316
  Transmission Date: 20110831
  Serious: Yes (Hospitalization, Disabling, Other)
  Sender: FDA-Public Use
  Company Number: PHHY2010JP63811

PATIENT
  Sex: Male
  Weight: 69 kg

DRUGS (9)
  1. DEPAS [Concomitant]
     Indication: INSOMNIA
     Dosage: UNK
     Route: 048
     Dates: start: 20100303, end: 20100511
  2. DIOVAN [Suspect]
     Dosage: 80 MG, QD
     Route: 048
     Dates: start: 20100916, end: 20101208
  3. ASPIRIN [Concomitant]
     Indication: CEREBRAL INFARCTION
     Dosage: UNK
     Route: 048
     Dates: start: 20100303
  4. SELENICA-R [Concomitant]
     Indication: CONVULSION
     Dosage: UNK
     Route: 048
     Dates: start: 20100512
  5. DIOVAN [Suspect]
     Indication: HYPERTENSION
     Dosage: 80 MG, QD
     Route: 048
     Dates: start: 20091117, end: 20100202
  6. ALEVIATIN [Concomitant]
     Indication: CONVULSION
     Dosage: UNK
     Route: 048
     Dates: start: 20100303, end: 20100511
  7. TAKEPRON [Concomitant]
     Indication: CEREBRAL INFARCTION
     Dosage: UNK
     Route: 048
     Dates: start: 20100303
  8. DIOVAN [Suspect]
     Dosage: 160 MG, QD
     Route: 048
     Dates: start: 20100203, end: 20100826
  9. DIOVAN [Suspect]
     Dosage: 160 MG, QD
     Route: 048
     Dates: start: 20101209

REACTIONS (4)
  - HYPOTENSION [None]
  - VISUAL ACUITY REDUCED [None]
  - ACUTE PRERENAL FAILURE [None]
  - DEHYDRATION [None]
